FAERS Safety Report 12075219 (Version 1)
Quarter: 2016Q1

REPORT INFORMATION
  Report Type: Spontaneous
  Country: US (occurrence: US)
  Receive Date: 20160212
  Receipt Date: 20160212
  Transmission Date: 20160526
  Serious: Yes (Hospitalization, Other)
  Sender: FDA-Public Use
  Company Number: US-ABBVIE-15P-163-1487760-00

PATIENT
  Age: 71 Year
  Sex: Male
  Weight: 94.43 kg

DRUGS (20)
  1. BABY ASPIRIN [Concomitant]
     Active Substance: ASPIRIN
     Indication: ANTICOAGULANT THERAPY
  2. PANTOPRAZOLE [Concomitant]
     Active Substance: PANTOPRAZOLE SODIUM
     Indication: DYSPEPSIA
     Dates: start: 201101, end: 201504
  3. COLCHICINE. [Concomitant]
     Active Substance: COLCHICINE
     Indication: ANTIINFLAMMATORY THERAPY
     Dates: start: 200903, end: 201504
  4. CIPRO [Concomitant]
     Active Substance: CIPROFLOXACIN HYDROCHLORIDE
     Indication: ABDOMINAL PAIN
  5. NITROSTAT [Concomitant]
     Active Substance: NITROGLYCERIN
     Indication: PRODUCT USED FOR UNKNOWN INDICATION
  6. ANDROGEL [Suspect]
     Active Substance: TESTOSTERONE
     Indication: ANDROGEN REPLACEMENT THERAPY
     Route: 061
     Dates: start: 200901, end: 201212
  7. PLAVIX [Suspect]
     Active Substance: CLOPIDOGREL BISULFATE
     Indication: ANTICOAGULANT THERAPY
     Route: 065
     Dates: start: 2011, end: 201409
  8. FLUTICASONE [Concomitant]
     Active Substance: FLUTICASONE\FLUTICASONE PROPIONATE
     Indication: SKIN DISORDER
     Dates: start: 200901, end: 201007
  9. VITAMIN D [Concomitant]
     Active Substance: CHOLECALCIFEROL
     Indication: PRODUCT USED FOR UNKNOWN INDICATION
     Route: 048
  10. FLUOXETINE [Concomitant]
     Active Substance: FLUOXETINE HYDROCHLORIDE
     Indication: ANXIETY
     Dates: start: 200901, end: 201504
  11. CYCLOBENZAPRIN [Concomitant]
     Active Substance: CYCLOBENZAPRINE
     Indication: PAIN
     Dates: start: 200910, end: 200911
  12. CARAC [Concomitant]
     Active Substance: FLUOROURACIL
     Indication: PRODUCT USED FOR UNKNOWN INDICATION
     Dates: start: 20090630
  13. BUPROPION. [Concomitant]
     Active Substance: BUPROPION
     Indication: ANXIETY
     Dates: start: 200901
  14. PRIMIDONE. [Concomitant]
     Active Substance: PRIMIDONE
     Indication: ESSENTIAL TREMOR
     Dates: start: 20110711
  15. PRAVASTATIN [Concomitant]
     Active Substance: PRAVASTATIN\PRAVASTATIN SODIUM
     Indication: BLOOD CHOLESTEROL
     Route: 048
     Dates: start: 201108
  16. CLARITIN-D 12 HOUR [Concomitant]
     Active Substance: LORATADINE\PSEUDOEPHEDRINE SULFATE
     Indication: RHINITIS ALLERGIC
  17. CLOPIDOGREL [Concomitant]
     Active Substance: CLOPIDOGREL BISULFATE
     Indication: ANTICOAGULANT THERAPY
     Dates: start: 201207, end: 201412
  18. METOPROLOL. [Concomitant]
     Active Substance: METOPROLOL
     Indication: CARDIAC DISORDER
     Route: 048
     Dates: start: 201108
  19. CALCIUM [Concomitant]
     Active Substance: CALCIUM
     Indication: PRODUCT USED FOR UNKNOWN INDICATION
     Route: 048
  20. ALLOPURINOL. [Concomitant]
     Active Substance: ALLOPURINOL
     Indication: GOUT
     Route: 048
     Dates: start: 200902

REACTIONS (29)
  - Chest pain [Unknown]
  - Blepharitis [Unknown]
  - Pharyngitis [Unknown]
  - Vertigo positional [Unknown]
  - Musculoskeletal chest pain [Unknown]
  - Sinusitis [Unknown]
  - Sinusitis [Unknown]
  - Upper respiratory tract infection [Unknown]
  - Hypoglycaemia [Unknown]
  - Flushing [Unknown]
  - Epistaxis [Unknown]
  - Diverticulitis [Unknown]
  - Actinic keratosis [Unknown]
  - Gastrooesophageal reflux disease [Unknown]
  - Otitis externa [Unknown]
  - Sinusitis [Unknown]
  - Skin infection [Unknown]
  - Upper respiratory tract infection [Unknown]
  - Myositis [Unknown]
  - Ileus [Unknown]
  - Seborrhoeic keratosis [Unknown]
  - Back pain [Unknown]
  - Acute myocardial infarction [Unknown]
  - Chest pain [Unknown]
  - Ear pain [Unknown]
  - Sinus arrhythmia [Unknown]
  - Squamous cell carcinoma of skin [Unknown]
  - Sinusitis [Unknown]
  - Flank pain [Unknown]

NARRATIVE: CASE EVENT DATE: 201101
